FAERS Safety Report 12677981 (Version 1)
Quarter: 2016Q3

REPORT INFORMATION
  Report Type: Report from Study
  Country: DE (occurrence: DE)
  Receive Date: 20160823
  Receipt Date: 20160823
  Transmission Date: 20161109
  Serious: Yes (Hospitalization, Other)
  Sender: FDA-Public Use
  Company Number: PHHO2010DE08670

PATIENT
  Age: 58 Year
  Sex: Female
  Weight: 54.8 kg

DRUGS (5)
  1. AFINITOR [Suspect]
     Active Substance: EVEROLIMUS
     Dosage: 5 MG, QD
     Route: 048
     Dates: start: 20100623
  2. AFINITOR [Suspect]
     Active Substance: EVEROLIMUS
     Indication: BREAST CANCER METASTATIC
     Dosage: 5 MG, QD
     Route: 048
     Dates: start: 20100601, end: 20100607
  3. COMPARATOR VINORELBINE [Suspect]
     Active Substance: VINORELBINE TARTRATE
     Indication: BREAST CANCER METASTATIC
     Dosage: 38.5 MG, QW
     Route: 042
     Dates: start: 20100601, end: 20100608
  4. COMPARATOR TRASTUZUMAB [Suspect]
     Active Substance: TRASTUZUMAB
     Indication: BREAST CANCER METASTATIC
     Dosage: 110 MG, QW
     Route: 042
     Dates: start: 20100601
  5. GRANISETRON [Concomitant]
     Active Substance: GRANISETRON
     Indication: BREAST CANCER
     Dosage: 1 MG, QW
     Route: 042
     Dates: start: 20100601, end: 20100608

REACTIONS (3)
  - Mucosal inflammation [Recovered/Resolved]
  - Gastritis [Recovering/Resolving]
  - Abdominal pain upper [Recovered/Resolved]

NARRATIVE: CASE EVENT DATE: 20100607
